FAERS Safety Report 6986156-5 (Version None)
Quarter: 2010Q3

REPORT INFORMATION
  Report Type: 
  Country: None (occurrence: None)
  Receive Date: 20100915
  Receipt Date: 20090707
  Transmission Date: 20110219
  Serious: No
  Sender: FDA-Public Use
  Company Number: US-WYE-H09548309

PATIENT
  Sex: Female
  Weight: 125.76 kg

DRUGS (5)
  1. PRISTIQ [Suspect]
     Indication: DEPRESSION
     Route: 048
     Dates: start: 20090518, end: 20090619
  2. LISINOPRIL [Concomitant]
  3. ACETYLSALICYLIC ACID [Concomitant]
  4. VYTORIN [Interacting]
     Dosage: UNKNOWN
     Dates: start: 20090525
  5. SYNTHROID [Concomitant]

REACTIONS (5)
  - AGITATION [None]
  - ANGER [None]
  - ANXIETY [None]
  - DRUG INTERACTION [None]
  - INCREASED APPETITE [None]
